FAERS Safety Report 8541331-3 (Version None)
Quarter: 2012Q3

REPORT INFORMATION
  Report Type: 
  Country: None (occurrence: None)
  Receive Date: 20120726
  Receipt Date: 20120723
  Transmission Date: 20120928
  Serious: Yes (Hospitalization)
  Sender: FDA-Public Use
  Company Number: FR-GILEAD-2012-0058420

PATIENT
  Sex: Female

DRUGS (5)
  1. TRUVADA [Suspect]
     Indication: HIV INFECTION
     Dosage: 1 DF, QD
     Route: 048
     Dates: start: 20080101, end: 20120507
  2. VIRAMUNE [Suspect]
     Dosage: 1 DF, QD
     Route: 048
     Dates: start: 20120410, end: 20120425
  3. VIRAMUNE [Suspect]
     Indication: HIV INFECTION
     Dosage: 2 DF, QD
     Route: 048
     Dates: start: 20120426, end: 20120507
  4. NORVIR [Concomitant]
     Indication: HIV INFECTION
     Dosage: UNK
     Dates: start: 20080101, end: 20120410
  5. REYATAZ [Concomitant]
     Indication: HIV INFECTION
     Dosage: UNK
     Dates: start: 20080101, end: 20120410

REACTIONS (2)
  - RASH [None]
  - MOUTH ULCERATION [None]
